FAERS Safety Report 7590427-1 (Version None)
Quarter: 2011Q3

REPORT INFORMATION
  Report Type: 
  Country: None (occurrence: None)
  Receive Date: 20110705
  Receipt Date: 20110701
  Transmission Date: 20111222
  Serious: Yes (Hospitalization)
  Sender: FDA-Public Use
  Company Number: US-PFIZER INC-2010114951

PATIENT
  Sex: Female
  Weight: 77 kg

DRUGS (12)
  1. METFORMIN [Concomitant]
     Indication: DIABETES MELLITUS
     Dosage: 1000 MG, 2X/DAY
     Route: 048
     Dates: start: 19900101
  2. ZOFRAN [Concomitant]
     Indication: NAUSEA
     Dosage: 8 MG, 3X/DAY
     Route: 048
     Dates: start: 20100420
  3. SUNITINIB MALATE [Suspect]
     Indication: METASTATIC RENAL CELL CARCINOMA
     Dosage: 25 MG, 1X/DAY
     Route: 048
     Dates: start: 20070614, end: 20100907
  4. ACETAMINOPHEN AND HYDROCODONE BITARTRATE [Concomitant]
     Indication: PAIN
     Dosage: 5/325MG, PRN
     Route: 048
     Dates: start: 20100902, end: 20100904
  5. IMODIUM [Concomitant]
     Indication: DIARRHOEA
     Dosage: 2 TAB, PRN
     Route: 048
     Dates: start: 20070704
  6. METOPROLOL [Concomitant]
     Indication: HYPERTENSION
     Dosage: 100 MG, 2X/DAY
     Route: 048
     Dates: start: 20090507
  7. MAGNESIUM OXIDE [Concomitant]
     Indication: BLOOD MAGNESIUM DECREASED
     Dosage: 400 MG, 2X/DAY
     Route: 048
     Dates: start: 20100224
  8. CALCIUM [Concomitant]
     Indication: OSTEOPOROSIS
     Dosage: 600 MG, 2X/DAY
     Route: 048
     Dates: start: 20070501
  9. LEVOTHYROXINE [Concomitant]
     Indication: HYPOTHYROIDISM
     Dosage: 50 MG, 1X/DAY
     Route: 048
     Dates: start: 20090218
  10. PROMETHAZINE [Concomitant]
     Indication: NAUSEA
     Dosage: 25 MG, 1X/DAY
     Route: 048
     Dates: start: 20100420
  11. ACETAMINOPHEN AND HYDROCODONE BITARTRATE [Concomitant]
     Dosage: 5/500MG, PRN
     Dates: start: 20100905
  12. NORCO [Concomitant]
     Indication: PAIN
     Dosage: 5/325MG, PRN
     Route: 048
     Dates: start: 20100907

REACTIONS (15)
  - ASTHENIA [None]
  - BLOOD UREA INCREASED [None]
  - BLOOD ALBUMIN DECREASED [None]
  - PROTEIN URINE PRESENT [None]
  - URINE KETONE BODY PRESENT [None]
  - VOMITING [None]
  - HYPOTHYROIDISM [None]
  - BLOOD CREATININE INCREASED [None]
  - BACK PAIN [None]
  - GASTROENTERITIS [None]
  - RED BLOOD CELL COUNT DECREASED [None]
  - WHITE BLOOD CELL COUNT DECREASED [None]
  - NECK PAIN [None]
  - HAEMOGLOBIN DECREASED [None]
  - BLOOD GLUCOSE INCREASED [None]
